FAERS Safety Report 18369980 (Version 1)
Quarter: 2020Q4

REPORT INFORMATION
  Report Type: Spontaneous
  Country: US (occurrence: US)
  Receive Date: 20201012
  Receipt Date: 20201012
  Transmission Date: 20210114
  Serious: Yes (Other)
  Sender: FDA-Public Use
  Company Number: US-HETERO-HET2020US01111

PATIENT
  Age: 53 Year
  Sex: Male

DRUGS (1)
  1. RITONAVIR. [Suspect]
     Active Substance: RITONAVIR
     Indication: HIV INFECTION
     Route: 065

REACTIONS (3)
  - Retinal pigmentation [Unknown]
  - Retinal toxicity [Unknown]
  - Maculopathy [Unknown]
